FAERS Safety Report 14113656 (Version 1)
Quarter: 2017Q4

REPORT INFORMATION
  Report Type: Spontaneous
  Country: US (occurrence: US)
  Receive Date: 20171021
  Receipt Date: 20171021
  Transmission Date: 20180321
  Serious: Yes (Life-Threatening, Disabling, Congenital Anomaly, Other)
  Sender: FDA-Public Use
  Company Number: None

PATIENT

DRUGS (3)
  1. MTP KIT MIFEPRISTONE [Suspect]
     Active Substance: MIFEPRISTONE
     Dosage: ?          QUANTITY:120 TABLET(S);?
     Route: 048
     Dates: start: 20171002, end: 20171003
  2. MODAFINIL 200MG [Suspect]
     Active Substance: MODAFINIL
     Indication: HYPERSOMNIA
     Route: 048
     Dates: start: 20171002, end: 20171003
  3. MTP KIT MISOPROSTOL [Suspect]
     Active Substance: MISOPROSTOL
     Route: 048
     Dates: start: 20171002, end: 20171003

REACTIONS (5)
  - Miscarriage of partner [None]
  - Counterfeit drug administered [None]
  - Exposure via body fluid [None]
  - Adverse drug reaction [None]
  - Product counterfeit [None]

NARRATIVE: CASE EVENT DATE: 20171002
